FAERS Safety Report 7309428-3 (Version None)
Quarter: 2011Q1

REPORT INFORMATION
  Report Type: 
  Country: None (occurrence: None)
  Receive Date: 20110211
  Receipt Date: 20110106
  Transmission Date: 20110831
  Serious: Yes (Disabling, Other)
  Sender: FDA-Public Use
  Company Number: ALA_01695_2011

PATIENT
  Sex: Male
  Weight: 63.5036 kg

DRUGS (6)
  1. VALIUM [Concomitant]
  2. SLEEP MEDICATION [Concomitant]
  3. REGLAN [Suspect]
     Indication: DIABETIC GASTROPARESIS
     Dosage: (10MG ORAL), (DF ORAL), (DF INTRAVENOUS (NOT OTHERWISE SPECIFIED))
     Route: 048
     Dates: start: 20020930, end: 20060109
  4. REGLAN [Suspect]
     Indication: NAUSEA
     Dosage: (10MG ORAL), (DF ORAL), (DF INTRAVENOUS (NOT OTHERWISE SPECIFIED))
     Route: 048
     Dates: start: 20020930, end: 20060109
  5. REGLAN [Suspect]
     Indication: DIABETIC GASTROPARESIS
     Dosage: (10MG ORAL), (DF ORAL), (DF INTRAVENOUS (NOT OTHERWISE SPECIFIED))
     Route: 048
     Dates: start: 19850101, end: 19970101
  6. REGLAN [Suspect]
     Indication: NAUSEA
     Dosage: (10MG ORAL), (DF ORAL), (DF INTRAVENOUS (NOT OTHERWISE SPECIFIED))
     Route: 048
     Dates: start: 19850101, end: 19970101

REACTIONS (5)
  - TARDIVE DYSKINESIA [None]
  - DYSARTHRIA [None]
  - EMOTIONAL DISORDER [None]
  - HUNTINGTON'S DISEASE [None]
  - ECONOMIC PROBLEM [None]
